FAERS Safety Report 6539457-9 (Version None)
Quarter: 2010Q1

REPORT INFORMATION
  Report Type: 
  Country: None (occurrence: None)
  Receive Date: 20100115
  Receipt Date: 20091201
  Transmission Date: 20100710
  Serious: Yes (Hospitalization)
  Sender: FDA-Public Use
  Company Number: A0753421A

PATIENT
  Age: 50 Year
  Sex: Male
  Weight: 102.3 kg

DRUGS (4)
  1. AVANDIA [Suspect]
     Route: 048
     Dates: end: 20050101
  2. AVANDAMET [Suspect]
     Route: 048
     Dates: end: 20050101
  3. LIPITOR [Concomitant]
  4. LISINOPRIL [Concomitant]

REACTIONS (10)
  - ARTERIAL STENOSIS [None]
  - CARDIAC FAILURE CONGESTIVE [None]
  - CORONARY ARTERY DISEASE [None]
  - IMPLANTABLE DEFIBRILLATOR INSERTION [None]
  - INTERMITTENT CLAUDICATION [None]
  - ISCHAEMIC CARDIOMYOPATHY [None]
  - MYOCARDIAL INFARCTION [None]
  - PERIPHERAL VASCULAR DISORDER [None]
  - PULMONARY OEDEMA [None]
  - RESPIRATORY FAILURE [None]
